FAERS Safety Report 9069767 (Version 2)
Quarter: 2013Q1

REPORT INFORMATION
  Report Type: Report from Study
  Country: US (occurrence: US)
  Receive Date: 20130215
  Receipt Date: 20130218
  Transmission Date: 20140127
  Serious: Yes (Hospitalization)
  Sender: FDA-Public Use
  Company Number: US-ABBOTT-13P-163-1048054-00

PATIENT
  Sex: Male
  Weight: 118.04 kg

DRUGS (13)
  1. HUMIRA [Suspect]
     Indication: PSORIATIC ARTHROPATHY
  2. LYRICA [Concomitant]
     Indication: NEUROPATHY PERIPHERAL
  3. LYRICA [Concomitant]
     Indication: PAIN IN EXTREMITY
  4. METOPROLOL [Concomitant]
     Indication: CARDIAC DISORDER
  5. MICARDIS [Concomitant]
     Indication: CARDIAC DISORDER
  6. RANEXA [Concomitant]
     Indication: BLOOD PRESSURE
  7. HYDROCODONE [Concomitant]
     Indication: PAIN
  8. IBUPROFEN [Concomitant]
     Indication: PAIN
  9. CLOPIDOGREL [Concomitant]
     Indication: CARDIAC DISORDER
  10. LIPITOR [Concomitant]
     Indication: BLOOD CHOLESTEROL
  11. AMITRIPTYLINE [Concomitant]
     Indication: NEUROPATHY PERIPHERAL
  12. CLONAZEPAM [Concomitant]
     Indication: NEUROPATHY PERIPHERAL
  13. GLIMEPIRIDE [Concomitant]
     Indication: BLOOD GLUCOSE ABNORMAL
     Dosage: AS NEEDED

REACTIONS (4)
  - Arthropathy [Unknown]
  - Arthritis [Recovered/Resolved]
  - Arthritis [Recovered/Resolved]
  - Arthropathy [Unknown]
